FAERS Safety Report 11502746 (Version 1)
Quarter: 2015Q3

REPORT INFORMATION
  Report Type: Spontaneous
  Country: US (occurrence: US)
  Receive Date: 20150914
  Receipt Date: 20150914
  Transmission Date: 20151125
  Serious: No
  Sender: FDA-Public Use
  Company Number: US-ASTELLAS-2015US028527

PATIENT
  Age: 82 Year
  Sex: Male

DRUGS (1)
  1. XTANDI [Suspect]
     Active Substance: ENZALUTAMIDE
     Indication: NEOPLASM PROSTATE
     Dosage: 160 MG (4X40 MG), ONCE DAILY
     Route: 048
     Dates: start: 20150514

REACTIONS (2)
  - Alopecia [Recovered/Resolved]
  - Fatigue [Not Recovered/Not Resolved]

NARRATIVE: CASE EVENT DATE: 201507
